FAERS Safety Report 22333983 (Version 1)
Quarter: 2023Q2

REPORT INFORMATION
  Report Type: Spontaneous
  Country: CN (occurrence: CN)
  Receive Date: 20230517
  Receipt Date: 20230517
  Transmission Date: 20230721
  Serious: Yes (Hospitalization, Other)
  Sender: FDA-Public Use
  Company Number: CN-002147023-NVSC2023CN109983

PATIENT
  Age: 55 Year
  Sex: Male
  Weight: 55 kg

DRUGS (1)
  1. CERITINIB [Suspect]
     Active Substance: CERITINIB
     Indication: Lung carcinoma cell type unspecified recurrent
     Dosage: 450 MG, QD
     Route: 048
     Dates: start: 20230211, end: 20230410

REACTIONS (12)
  - Dizziness [Recovering/Resolving]
  - Decreased appetite [Recovering/Resolving]
  - Asthenia [Recovering/Resolving]
  - Nausea [Recovering/Resolving]
  - Vomiting [Recovering/Resolving]
  - Renal failure [Unknown]
  - Renal impairment [Recovering/Resolving]
  - Acute kidney injury [Unknown]
  - Hyperkalaemia [Recovered/Resolved]
  - Hyperuricaemia [Unknown]
  - Metabolic acidosis [Unknown]
  - Blood creatinine increased [Recovering/Resolving]

NARRATIVE: CASE EVENT DATE: 20230411
